FAERS Safety Report 15616704 (Version 1)
Quarter: 2018Q4

REPORT INFORMATION
  Report Type: Spontaneous
  Country: CA (occurrence: CA)
  Receive Date: 20181114
  Receipt Date: 20181114
  Transmission Date: 20190205
  Serious: Yes (Other)
  Sender: FDA-Public Use
  Company Number: CA-TEVA-2018-CA-975164

PATIENT
  Age: 73 Year
  Sex: Male

DRUGS (1)
  1. PREDNISONE. [Suspect]
     Active Substance: PREDNISONE
     Indication: PRODUCT USED FOR UNKNOWN INDICATION
     Dosage: PREDNISONE 40 MG FOR 2 WEEKS THEN TAPER 5MG WEEKLY UNTIL FINISHED
     Dates: start: 201808, end: 201810

REACTIONS (3)
  - Drug ineffective [Unknown]
  - Skin laceration [Unknown]
  - Herpes zoster [Unknown]

NARRATIVE: CASE EVENT DATE: 201809
